FAERS Safety Report 10026479 (Version 4)
Quarter: 2015Q2

REPORT INFORMATION
  Report Type: Report from Study
  Country: JP (occurrence: JP)
  Receive Date: 20140321
  Receipt Date: 20150626
  Transmission Date: 20150821
  Serious: Yes (Hospitalization, Other)
  Sender: FDA-Public Use
  Company Number: JP-UCBSA-094000

PATIENT
  Age: 40 Year
  Sex: Female
  Weight: 48 kg

DRUGS (3)
  1. ACTEMRA [Suspect]
     Active Substance: TOCILIZUMAB
     Indication: RHEUMATOID ARTHRITIS
     Dosage: 1DF
     Route: 058
     Dates: start: 20140722
  2. ETANERCEPT [Concomitant]
     Active Substance: ETANERCEPT
     Dosage: UNKNOWN DOSE
  3. CERTOLIZUMAB PEGOL RA [Suspect]
     Active Substance: CERTOLIZUMAB PEGOL
     Indication: RHEUMATOID ARTHRITIS
     Dosage: DOSE: 400 MG
     Route: 058
     Dates: start: 20130706, end: 20130706

REACTIONS (4)
  - Pneumonia [Recovered/Resolved]
  - Pleurisy [Recovered/Resolved]
  - Leukopenia [Recovering/Resolving]
  - Breast feeding [Unknown]

NARRATIVE: CASE EVENT DATE: 2013
